FAERS Safety Report 20403605 (Version 2)
Quarter: 2022Q2

REPORT INFORMATION
  Report Type: Spontaneous
  Country: US (occurrence: US)
  Receive Date: 20220131
  Receipt Date: 20220408
  Transmission Date: 20220721
  Serious: No
  Sender: FDA-Public Use
  Company Number: US-DECIPHERA PHARMACEUTICALS LLC-2021US001059

PATIENT
  Sex: Female

DRUGS (1)
  1. QINLOCK [Suspect]
     Active Substance: RIPRETINIB
     Indication: Gastrointestinal stromal tumour
     Dosage: 150 MILLIGRAM, QD
     Route: 048
     Dates: start: 20210915

REACTIONS (13)
  - Sleep disorder [Unknown]
  - Hypoaesthesia [Unknown]
  - Seasonal affective disorder [Unknown]
  - Psychomotor hyperactivity [Unknown]
  - Ear discomfort [Unknown]
  - Memory impairment [Unknown]
  - Anxiety [Unknown]
  - Dyspepsia [Unknown]
  - Abdominal pain upper [Unknown]
  - Pain in extremity [Unknown]
  - Hyperkeratosis [Unknown]
  - Diarrhoea [Unknown]
  - Constipation [Unknown]

NARRATIVE: CASE EVENT DATE: 20210101
